FAERS Safety Report 17485076 (Version 3)
Quarter: 2020Q4

REPORT INFORMATION
  Report Type: Spontaneous
  Country: US (occurrence: US)
  Receive Date: 20200302
  Receipt Date: 20201224
  Transmission Date: 20210113
  Serious: Yes (Death, Other)
  Sender: FDA-Public Use
  Company Number: US-SHIRE-US202007735

PATIENT
  Sex: Male

DRUGS (4)
  1. GATTEX [Suspect]
     Active Substance: TEDUGLUTIDE\WATER
     Indication: PRODUCT USED FOR UNKNOWN INDICATION
     Dosage: 0.5000 UNIT UNKNOWN, FREQUENCY UNKNOWN
     Route: 058
     Dates: start: 20130409
  2. GATTEX [Suspect]
     Active Substance: TEDUGLUTIDE\WATER
     Indication: PRODUCT USED FOR UNKNOWN INDICATION
     Dosage: 0.5000 UNIT UNKNOWN, FREQUENCY UNKNOWN
     Route: 058
     Dates: start: 20130409
  3. GATTEX [Suspect]
     Active Substance: TEDUGLUTIDE\WATER
     Indication: PRODUCT USED FOR UNKNOWN INDICATION
     Dosage: 0.5000 UNIT UNKNOWN, FREQUENCY UNKNOWN
     Route: 058
     Dates: start: 20130409
  4. GATTEX [Suspect]
     Active Substance: TEDUGLUTIDE\WATER
     Indication: PRODUCT USED FOR UNKNOWN INDICATION
     Dosage: 0.5000 UNIT UNKNOWN, FREQUENCY UNKNOWN
     Route: 058
     Dates: start: 20130409

REACTIONS (2)
  - Vascular device infection [Not Recovered/Not Resolved]
  - Pneumonia [Fatal]
